FAERS Safety Report 18516679 (Version 1)
Quarter: 2020Q4

REPORT INFORMATION
  Report Type: Spontaneous
  Country: US (occurrence: US)
  Receive Date: 20201118
  Receipt Date: 20201118
  Transmission Date: 20210114
  Serious: Yes (Life-Threatening, Hospitalization)
  Sender: FDA-Public Use
  Company Number: None

PATIENT
  Age: 28 Year
  Sex: Male
  Weight: 67.5 kg

DRUGS (3)
  1. WORMWOOD [Concomitant]
     Active Substance: WORMWOOD
  2. VITAMIN D, C [Concomitant]
  3. FLAGYL [Suspect]
     Active Substance: METRONIDAZOLE\METRONIDAZOLE HYDROCHLORIDE
     Indication: BLASTOCYSTIS INFECTION
     Dosage: ?          QUANTITY:3 TABLET(S);?
     Route: 048
     Dates: start: 20200810, end: 20200817

REACTIONS (2)
  - Clostridium test positive [None]
  - Blastocystis infection [None]

NARRATIVE: CASE EVENT DATE: 20200921
